FAERS Safety Report 8825134 (Version 2)
Quarter: 2012Q4

REPORT INFORMATION
  Report Type: 
  Country: US (occurrence: US)
  Receive Date: 20121004
  Receipt Date: 20121213
  Transmission Date: 20130627
  Serious: Yes (Death, Hospitalization, Other)
  Sender: FDA-Public Use
  Company Number: US-ROCHE-1130635

PATIENT
  Sex: Male

DRUGS (5)
  1. RITUXAN [Suspect]
     Indication: LYMPHOMA
     Route: 065
  2. RITUXAN [Suspect]
     Indication: OFF LABEL USE
  3. IFOSFAMIDE [Concomitant]
  4. ARA-C [Concomitant]
     Dosage: HIGH DOSE
     Route: 065
  5. METHOTREXATE [Concomitant]
     Dosage: HIGH DOSE
     Route: 065

REACTIONS (11)
  - Sepsis [Fatal]
  - Febrile neutropenia [Unknown]
  - Mucosal inflammation [Unknown]
  - Dehydration [Unknown]
  - Hyperbilirubinaemia [Unknown]
  - Respiratory failure [Unknown]
  - Renal failure [Unknown]
  - Coagulopathy [Unknown]
  - Hypotension [Unknown]
  - Tachyarrhythmia [Unknown]
  - Mental status changes [Unknown]
